FAERS Safety Report 4437621-6 (Version None)
Quarter: 2004Q3

REPORT INFORMATION
  Report Type: 
  Country: None (occurrence: None)
  Receive Date: 20040827
  Receipt Date: 20040815
  Transmission Date: 20050211
  Serious: Yes (Other)
  Sender: FDA-Public Use
  Company Number: 2004228897BR

PATIENT
  Age: 39 Year
  Sex: Female

DRUGS (1)
  1. DEPO-PROVERA [Suspect]
     Indication: CONTRACEPTION
     Dosage: 150 MG, FIRST INJECTION, IV
     Route: 042
     Dates: start: 20040812, end: 20040812

REACTIONS (3)
  - BLOOD PRESSURE DECREASED [None]
  - MEDICATION ERROR [None]
  - SYNCOPE [None]
